FAERS Safety Report 8614008-3 (Version None)
Quarter: 2012Q3

REPORT INFORMATION
  Report Type: 
  Country: None (occurrence: None)
  Receive Date: 20120823
  Receipt Date: 20120820
  Transmission Date: 20120928
  Serious: No
  Sender: FDA-Public Use
  Company Number: US-PFIZER INC-2012204937

PATIENT
  Age: 61 Year
  Sex: Female
  Weight: 86.168 kg

DRUGS (9)
  1. LOSARTAN [Concomitant]
     Dosage: UNK
  2. POTASSIUM [Concomitant]
     Dosage: UNK
  3. CALCIUM [Concomitant]
     Dosage: UNK
  4. FISH OIL [Concomitant]
     Dosage: UNK
  5. PRISTIQ [Suspect]
     Indication: ANXIETY
  6. LOVASTATIN [Concomitant]
     Dosage: UNK
  7. PRISTIQ [Suspect]
     Indication: DEPRESSION
     Dosage: 100 MG, 1X/DAY
     Dates: start: 20120614
  8. PLAVIX [Concomitant]
     Dosage: UNK
  9. NEXIUM [Concomitant]
     Dosage: UNK

REACTIONS (1)
  - DRUG INTOLERANCE [None]
